FAERS Safety Report 9897960 (Version 1)
Quarter: 2014Q1

REPORT INFORMATION
  Report Type: Spontaneous
  Country: US (occurrence: US)
  Receive Date: 20140214
  Receipt Date: 20140214
  Transmission Date: 20141002
  Serious: No
  Sender: FDA-Public Use
  Company Number: US-PFIZER INC-2014040301

PATIENT
  Age: 36 Year
  Sex: Female
  Weight: 134.24 kg

DRUGS (1)
  1. GEODON [Suspect]
     Indication: BIPOLAR DISORDER
     Dosage: 40 MG, 2X/DAY
     Route: 048
     Dates: start: 200305

REACTIONS (2)
  - Somnolence [Unknown]
  - Hypersomnia [Unknown]
